FAERS Safety Report 7642467-1 (Version None)
Quarter: 2011Q3

REPORT INFORMATION
  Report Type: 
  Country: None (occurrence: None)
  Receive Date: 20110722
  Receipt Date: 20110711
  Transmission Date: 20111222
  Serious: Yes (Hospitalization)
  Sender: FDA-Public Use
  Company Number: LTI2011A00196

PATIENT
  Age: 72 Year
  Sex: Male

DRUGS (7)
  1. GLUCOVANCE [Concomitant]
  2. PRAVADUAL (ACETYLSALICYLIC ACID, PRAVASTATIN SODIUM) [Concomitant]
  3. LEVOTHYROXINE SODIUM [Concomitant]
  4. ALLOPURINOL [Concomitant]
  5. PIOGLITAZONE HYDROCHLORIDE/METFORMIN HYDROCHLORIDE [Suspect]
     Indication: DIABETES MELLITUS
     Dosage: 1 TAB (1 TAB, 1 IN 1 D), ORAL
     Route: 048
     Dates: start: 20080101, end: 20110501
  6. TRIATEC (CODEINE PHOSPHATE, PARACETAMOL) [Concomitant]
  7. ACTOS [Suspect]
     Indication: DIABETES MELLITUS
     Dosage: 30 MG (30 MG, 1 IN 1 D), ORAL
     Route: 048
     Dates: start: 20070101, end: 20110501

REACTIONS (1)
  - TRANSITIONAL CELL CARCINOMA [None]
